FAERS Safety Report 8067326-4 (Version None)
Quarter: 2012Q1

REPORT INFORMATION
  Report Type: 
  Country: None (occurrence: None)
  Receive Date: 20120124
  Receipt Date: 20120116
  Transmission Date: 20120608
  Serious: No
  Sender: FDA-Public Use
  Company Number: JP-GLAXOSMITHKLINE-B0770891A

PATIENT
  Sex: Male

DRUGS (6)
  1. NIFELAT L [Concomitant]
     Route: 048
  2. ASPIRIN [Concomitant]
     Route: 048
  3. OMEPRAZOLE [Concomitant]
     Route: 065
  4. DUTASTERIDE [Suspect]
     Indication: BENIGN PROSTATIC HYPERPLASIA
     Dosage: .5MG PER DAY
     Route: 048
     Dates: start: 20111216, end: 20111219
  5. TICLOPIDINE HCL [Concomitant]
     Route: 048
  6. TANATRIL [Concomitant]
     Route: 048

REACTIONS (1)
  - BLOOD PRESSURE INCREASED [None]
